FAERS Safety Report 20137692 (Version 1)
Quarter: 2021Q4

REPORT INFORMATION
  Report Type: Spontaneous
  Country: US (occurrence: US)
  Receive Date: 20211202
  Receipt Date: 20211202
  Transmission Date: 20220303
  Serious: Yes (Other)
  Sender: FDA-Public Use
  Company Number: US-drreddys-SPO/USA/21/0144316

PATIENT
  Age: 14 Year
  Sex: Male

DRUGS (1)
  1. ZENATANE [Suspect]
     Active Substance: ISOTRETINOIN
     Indication: Product used for unknown indication
     Dosage: RMA ISSUE DATE:21 JUNE 2021 12:00:00 AM,20 JULY 2021 12:00:00 AM,12 AUGUST 2021 12:00:00 AM,16 SEPTE
     Dates: start: 20210621, end: 20210916

REACTIONS (1)
  - Depressive symptom [Unknown]
